FAERS Safety Report 19349928 (Version 1)
Quarter: 2021Q2

REPORT INFORMATION
  Report Type: Spontaneous
  Country: US (occurrence: US)
  Receive Date: 20210601
  Receipt Date: 20210601
  Transmission Date: 20210717
  Serious: Yes (Hospitalization)
  Sender: FDA-Public Use
  Company Number: None

PATIENT
  Sex: Male

DRUGS (1)
  1. PEMAZYRE [Suspect]
     Active Substance: PEMIGATINIB
     Indication: CHOLANGIOCARCINOMA
     Route: 048
     Dates: start: 20210502

REACTIONS (8)
  - Peripheral swelling [None]
  - Pyrexia [None]
  - Confusional state [None]
  - White blood cell count increased [None]
  - Blood glucose increased [None]
  - Sepsis [None]
  - Hypotension [None]
  - Arthralgia [None]
